FAERS Safety Report 7151798-3 (Version None)
Quarter: 2010Q4

REPORT INFORMATION
  Report Type: 
  Country: None (occurrence: None)
  Receive Date: 20101123
  Receipt Date: 20100901
  Transmission Date: 20110411
  Serious: No
  Sender: FDA-Public Use
  Company Number: 018149

PATIENT
  Sex: Female

DRUGS (1)
  1. CIMZIA [Suspect]
     Indication: CROHN'S DISEASE
     Dosage: ( SUBCUTANEOUS)
     Route: 058
     Dates: start: 20100731

REACTIONS (2)
  - FURUNCLE [None]
  - RASH [None]
